FAERS Safety Report 25337748 (Version 1)
Quarter: 2025Q2

REPORT INFORMATION
  Report Type: Spontaneous
  Country: US (occurrence: US)
  Receive Date: 20250520
  Receipt Date: 20250520
  Transmission Date: 20250717
  Serious: No
  Sender: SEPTODONT
  Company Number: US-SEPTODONT-2025019485

PATIENT
  Age: 4 Decade
  Sex: Male

DRUGS (3)
  1. MEPIVACAINE HYDROCHLORIDE [Suspect]
     Active Substance: MEPIVACAINE HYDROCHLORIDE
     Indication: Dental local anaesthesia
     Route: 065
     Dates: start: 20250218
  2. EPINEPHRINE BITARTRATE\LIDOCAINE HYDROCHLORIDE [Suspect]
     Active Substance: EPINEPHRINE BITARTRATE\LIDOCAINE HYDROCHLORIDE
     Indication: Dental local anaesthesia
     Route: 065
     Dates: start: 20250218
  3. Normal syringe [Concomitant]
     Dates: start: 20250218

REACTIONS (4)
  - Product leakage [Unknown]
  - Product container seal issue [Unknown]
  - Accidental exposure to product [Unknown]
  - No adverse event [Unknown]

NARRATIVE: CASE EVENT DATE: 20250218
